FAERS Safety Report 4392104-7 (Version None)
Quarter: 2004Q3

REPORT INFORMATION
  Report Type: 
  Country: None (occurrence: None)
  Receive Date: 20040702
  Receipt Date: 20040317
  Transmission Date: 20050211
  Serious: Yes (Other)
  Sender: FDA-Public Use
  Company Number: 2004UW04592

PATIENT
  Age: 47 Year
  Sex: Male

DRUGS (2)
  1. CRESTOR [Suspect]
     Dosage: 10 MG QD PO
     Route: 048
  2. VERAPAMIL [Suspect]
     Dosage: 180 MG DAILY

REACTIONS (4)
  - ASTHENIA [None]
  - DRUG INTERACTION [None]
  - FATIGUE [None]
  - MYALGIA [None]
